FAERS Safety Report 5401027-3 (Version None)
Quarter: 2007Q3

REPORT INFORMATION
  Report Type: 
  Country: None (occurrence: None)
  Receive Date: 20070730
  Receipt Date: 20070720
  Transmission Date: 20080115
  Serious: Yes (Hospitalization, Disabling, Other)
  Sender: FDA-Public Use
  Company Number: GB-ABBOTT-05P-167-0318229-00

PATIENT
  Sex: Male
  Weight: 60.9 kg

DRUGS (4)
  1. HUMIRA [Suspect]
     Indication: RHEUMATOID ARTHRITIS
     Route: 058
     Dates: start: 20050507, end: 20060601
  2. IBUPROFEN [Concomitant]
     Indication: ANALGESIA
     Route: 048
     Dates: start: 19730101
  3. PARACETAMOL [Concomitant]
     Indication: ANALGESIA
     Route: 048
     Dates: start: 19730101
  4. METHOTREXATE SODIUM [Concomitant]
     Indication: DRUG USE FOR UNKNOWN INDICATION
     Dates: start: 20040701, end: 20040801

REACTIONS (4)
  - HAEMARTHROSIS [None]
  - MENISCUS LESION [None]
  - PAIN [None]
  - SWELLING [None]
